FAERS Safety Report 9333331 (Version 3)
Quarter: 2014Q2

REPORT INFORMATION
  Report Type: Spontaneous
  Country: US (occurrence: US)
  Receive Date: 20130606
  Receipt Date: 20140620
  Transmission Date: 20141212
  Serious: Yes (Hospitalization)
  Sender: FDA-Public Use
  Company Number: US-BAYER-2013-069574

PATIENT
  Age: 19 Year
  Sex: Female
  Weight: 67.57 kg

DRUGS (1)
  1. YASMIN [Suspect]
     Indication: ACNE
     Dosage: UNK
     Dates: start: 201110, end: 20120118

REACTIONS (3)
  - Cerebrovascular accident [None]
  - Pain [None]
  - Pain [None]
